FAERS Safety Report 13193382 (Version 1)
Quarter: 2017Q1

REPORT INFORMATION
  Report Type: Spontaneous
  Country: FR (occurrence: FR)
  Receive Date: 20170207
  Receipt Date: 20170207
  Transmission Date: 20170428
  Serious: Yes (Other)
  Sender: FDA-Public Use
  Company Number: FR-ELI_LILLY_AND_COMPANY-FR201702001785

PATIENT
  Age: 86 Year
  Sex: Female

DRUGS (1)
  1. ERBITUX [Suspect]
     Active Substance: CETUXIMAB
     Indication: TONGUE NEOPLASM MALIGNANT STAGE UNSPECIFIED
     Dosage: 250 MG/M2, WEEKLY (1/W)
     Route: 065
     Dates: end: 201701

REACTIONS (2)
  - Cardiomyopathy [Unknown]
  - Cardiac failure [Unknown]

NARRATIVE: CASE EVENT DATE: 201701
